FAERS Safety Report 16577235 (Version 6)
Quarter: 2021Q4

REPORT INFORMATION
  Report Type: Spontaneous
  Country: CA (occurrence: CA)
  Receive Date: 20190716
  Receipt Date: 20211110
  Transmission Date: 20220303
  Serious: Yes (Hospitalization)
  Sender: FDA-Public Use
  Company Number: CA-AUROBINDO-AUR-APL-2019-039125

PATIENT
  Age: 52 Year
  Sex: Male

DRUGS (50)
  1. AMLODIPINE [Suspect]
     Active Substance: AMLODIPINE BESYLATE
     Indication: Hypertension
     Dosage: 10 MILLIGRAM, ONCE A DAY
     Route: 048
  2. MOXIFLOXACIN [Suspect]
     Active Substance: MOXIFLOXACIN
     Indication: Product used for unknown indication
     Dosage: UNK UNK, 3 TIMES A DAY
     Route: 047
  3. MOXIFLOXACIN [Suspect]
     Active Substance: MOXIFLOXACIN
     Dosage: 1 DOSAGE FORM, ONCE A DAY
     Route: 065
  4. MOXIFLOXACIN [Suspect]
     Active Substance: MOXIFLOXACIN
     Dosage: 3 DOSAGE FORM, ONCE A DAY
     Route: 065
  5. BESIVANCE [Suspect]
     Active Substance: BESIFLOXACIN
     Indication: Product used for unknown indication
     Dosage: UNK UNK, 3 TIMES A DAY
     Route: 047
  6. BESIVANCE [Suspect]
     Active Substance: BESIFLOXACIN
     Dosage: 3 DOSAGE FORM, ONCE A DAY
     Route: 047
  7. BESIVANCE [Suspect]
     Active Substance: BESIFLOXACIN
     Dosage: 3 GTT DROPS, ONCE A DAY
     Route: 047
  8. BESIVANCE [Suspect]
     Active Substance: BESIFLOXACIN
     Dosage: 1 DOSAGE FORM, ONCE A DAY
     Route: 065
  9. BETOPTIC [Suspect]
     Active Substance: BETAXOLOL HYDROCHLORIDE
     Indication: Product used for unknown indication
     Dosage: 1 DOSAGE FORM, ONCE A DAY
     Route: 047
  10. BETOPTIC [Suspect]
     Active Substance: BETAXOLOL HYDROCHLORIDE
     Dosage: UNK UNK, ONCE A DAY
     Route: 047
  11. BETOPTIC [Suspect]
     Active Substance: BETAXOLOL HYDROCHLORIDE
     Dosage: 1 GTT DROPS, ONCE A DAY
     Route: 047
  12. BETOPTIC [Suspect]
     Active Substance: BETAXOLOL HYDROCHLORIDE
     Dosage: UNK, ONCE A DAY
     Route: 065
  13. CIALIS [Suspect]
     Active Substance: TADALAFIL
     Indication: Product used for unknown indication
     Dosage: UNK, TWO TIMES A DAY
     Route: 065
  14. CIALIS [Suspect]
     Active Substance: TADALAFIL
     Dosage: 2 DOSAGE FORM, ONCE A DAY
     Route: 065
  15. CIALIS [Suspect]
     Active Substance: TADALAFIL
     Dosage: 1 DOSAGE FORM, ONCE A DAY
     Route: 065
  16. EPIPEN JR [Suspect]
     Active Substance: EPINEPHRINE
     Indication: Drug hypersensitivity
     Dosage: UNK, AS NECESSARY
     Route: 030
  17. EPIPEN JR [Suspect]
     Active Substance: EPINEPHRINE
     Indication: Hypersensitivity
     Dosage: UNK,AS REQUIRED
     Route: 030
  18. EPIPEN JR [Suspect]
     Active Substance: EPINEPHRINE
     Dosage: UNK
     Route: 030
  19. NASONEX [Suspect]
     Active Substance: MOMETASONE FUROATE
     Indication: Product used for unknown indication
     Dosage: 2 DOSAGE FORM, ONCE A DAY
     Route: 006
  20. NASONEX [Suspect]
     Active Substance: MOMETASONE FUROATE
     Dosage: 1 DOSAGE FORM, ONCE A DAY
     Route: 006
  21. OLOPATADINE HYDROCHLORIDE [Suspect]
     Active Substance: OLOPATADINE HYDROCHLORIDE
     Indication: Product used for unknown indication
     Dosage: UNK,AS REQUIRED
     Route: 047
  22. PREDNISOLONE ACETATE [Suspect]
     Active Substance: PREDNISOLONE ACETATE
     Indication: Product used for unknown indication
     Dosage: UNK UNK, FOUR TIMES/DAY
     Route: 065
  23. PREDNISOLONE ACETATE [Suspect]
     Active Substance: PREDNISOLONE ACETATE
     Dosage: UNK UNK, 3 TIMES A DAY
     Route: 065
  24. PREDNISOLONE ACETATE [Suspect]
     Active Substance: PREDNISOLONE ACETATE
     Dosage: UNK UNK, TWO TIMES A DAY
     Route: 065
  25. PREDNISOLONE ACETATE [Suspect]
     Active Substance: PREDNISOLONE ACETATE
     Dosage: 2 DOSAGE FORM, ONCE A DAY
     Route: 065
  26. PREDNISOLONE ACETATE [Suspect]
     Active Substance: PREDNISOLONE ACETATE
     Dosage: 3 DOSAGE FORM, ONCE A DAY
     Route: 065
  27. PREDNISOLONE ACETATE [Suspect]
     Active Substance: PREDNISOLONE ACETATE
     Dosage: 4 DOSAGE FORM, ONCE A DAY
     Route: 065
  28. PREDNISOLONE ACETATE [Suspect]
     Active Substance: PREDNISOLONE ACETATE
     Dosage: 1 DOSAGE FORM, ONCE A DAY
     Route: 065
  29. PREDNISOLONE ACETATE [Suspect]
     Active Substance: PREDNISOLONE ACETATE
     Dosage: 50 MILLIGRAM, ONCE A DAY
     Route: 065
  30. PREDNISOLONE ACETATE [Suspect]
     Active Substance: PREDNISOLONE ACETATE
     Dosage: 50 MILLIGRAM, 3 TIMES A DAY
     Route: 065
  31. PREDNISONE ACETATE [Suspect]
     Active Substance: PREDNISONE ACETATE
     Indication: Product used for unknown indication
     Dosage: 50 MILLIGRAM, 3 TIMES A DAY
     Route: 047
  32. PREDNISONE ACETATE [Suspect]
     Active Substance: PREDNISONE ACETATE
     Dosage: 50 MILLIGRAM, ONCE A DAY
     Route: 047
  33. PREDNISONE ACETATE [Suspect]
     Active Substance: PREDNISONE ACETATE
     Dosage: 3 DOSAGE FORM, ONCE A DAY
     Route: 047
  34. NASONEX [Suspect]
     Active Substance: MOMETASONE FUROATE
     Indication: Product used for unknown indication
     Dosage: 2 DOSAGE FORM, ONCE A DAY
     Route: 045
  35. PREDNISONE ACETATE [Suspect]
     Active Substance: PREDNISONE ACETATE
     Indication: Product used for unknown indication
     Dosage: 50 MILLIGRAM, ONCE A DAY
     Route: 065
  36. PREDNISONE ACETATE [Suspect]
     Active Substance: PREDNISONE ACETATE
     Dosage: 50 MILLIGRAM, 3 TIMES A DAY
     Route: 065
  37. EPIPEN [Suspect]
     Active Substance: EPINEPHRINE
     Indication: Drug hypersensitivity
     Dosage: UNK, AS REQUIRED
     Route: 030
  38. EPIPEN [Suspect]
     Active Substance: EPINEPHRINE
     Indication: Hypersensitivity
  39. EPIPEN [Suspect]
     Active Substance: EPINEPHRINE
     Indication: Hypersensitivity
     Dosage: UNK
     Route: 065
  40. EPIPEN [Suspect]
     Active Substance: EPINEPHRINE
     Indication: Drug hypersensitivity
  41. MOXIFLOXACIN [Suspect]
     Active Substance: MOXIFLOXACIN
     Indication: Product used for unknown indication
     Dosage: UNK UNK, 3 TIMES A DAY
     Route: 047
  42. MOXIFLOXACIN [Suspect]
     Active Substance: MOXIFLOXACIN
     Dosage: UNK UNK, ONCE A DAY
     Route: 047
  43. PREDNISOLONE SODIUM PHOSPHATE [Suspect]
     Active Substance: PREDNISOLONE SODIUM PHOSPHATE
     Indication: Product used for unknown indication
     Dosage: UNK, ONCE A DAY
     Route: 065
  44. PREDNISOLONE SODIUM PHOSPHATE [Suspect]
     Active Substance: PREDNISOLONE SODIUM PHOSPHATE
     Dosage: UNK, TWO TIMES A DAY
     Route: 065
  45. PREDNISOLONE SODIUM PHOSPHATE [Suspect]
     Active Substance: PREDNISOLONE SODIUM PHOSPHATE
     Dosage: UNK, 3 TIMES A DAY
     Route: 065
  46. PREDNISOLONE SODIUM PHOSPHATE [Suspect]
     Active Substance: PREDNISOLONE SODIUM PHOSPHATE
     Dosage: UNK, FOUR TIMES A DAY
     Route: 065
  47. PREDNISOLONE SODIUM PHOSPHATE [Suspect]
     Active Substance: PREDNISOLONE SODIUM PHOSPHATE
     Dosage: 50 MILLIGRAM, ONCE A DAY
     Route: 065
  48. PREDNISOLONE SODIUM PHOSPHATE [Suspect]
     Active Substance: PREDNISOLONE SODIUM PHOSPHATE
     Dosage: 2 DOSAGE FORM, ONCE A DAY
     Route: 065
  49. PREDNISOLONE SODIUM PHOSPHATE [Suspect]
     Active Substance: PREDNISOLONE SODIUM PHOSPHATE
     Dosage: 50 MILLIGRAM, 3 TIMES A DAY
     Route: 065
  50. PREDNISOLONE SODIUM PHOSPHATE [Suspect]
     Active Substance: PREDNISOLONE SODIUM PHOSPHATE
     Dosage: 4 DOSAGE FORM, ONCE A DAY
     Route: 065

REACTIONS (1)
  - Hypersensitivity [Recovered/Resolved]
